FAERS Safety Report 18870058 (Version 2)
Quarter: 2024Q3

REPORT INFORMATION
  Report Type: Spontaneous
  Country: JP (occurrence: JP)
  Receive Date: 20210209
  Receipt Date: 20240802
  Transmission Date: 20241017
  Serious: Yes (Hospitalization)
  Sender: LUNDBECK
  Company Number: JP-SANOFI-2019SA059976

PATIENT

DRUGS (2)
  1. SABRIL [Suspect]
     Active Substance: VIGABATRIN
     Indication: Product used for unknown indication
     Dosage: 370 003
     Route: 048
     Dates: start: 20190226
  2. SABRIL [Suspect]
     Active Substance: VIGABATRIN
     Dosage: 740 003
     Route: 048

REACTIONS (2)
  - Pyrexia [Unknown]
  - Therapeutic product effect incomplete [Unknown]
